FAERS Safety Report 24956868 (Version 3)
Quarter: 2025Q1

REPORT INFORMATION
  Report Type: Spontaneous
  Country: US (occurrence: US)
  Receive Date: 20250211
  Receipt Date: 20250305
  Transmission Date: 20250409
  Serious: No
  Sender: PFIZER
  Company Number: US-PFIZER INC-202500009382

PATIENT
  Age: 59 Year
  Sex: Female

DRUGS (2)
  1. TUKYSA [Suspect]
     Active Substance: TUCATINIB
     Dosage: 450 MG, DAILY (300MG IN THE AM AND 150MG IN THE PM )
  2. CAPECITABINE [Concomitant]
     Active Substance: CAPECITABINE

REACTIONS (2)
  - Amnesia [Unknown]
  - Off label use [Unknown]
